FAERS Safety Report 23621976 (Version 1)
Quarter: 2024Q1

REPORT INFORMATION
  Report Type: Spontaneous
  Country: US (occurrence: None)
  Receive Date: 20240311
  Receipt Date: 20240311
  Transmission Date: 20240410
  Serious: Yes (Disabling, Other)
  Sender: FDA-Public Use
  Company Number: None

PATIENT
  Age: 67 Year
  Sex: Female
  Weight: 59.4 kg

DRUGS (6)
  1. PROLIA [Suspect]
     Active Substance: DENOSUMAB
     Indication: Osteoporosis
  2. AMLODIPINE BESYLATE [Concomitant]
     Active Substance: AMLODIPINE BESYLATE
  3. DULOXETINE [Concomitant]
     Active Substance: DULOXETINE
  4. PREDNISONE [Concomitant]
     Active Substance: PREDNISONE
  5. VITAMIN B12 [Concomitant]
     Active Substance: CYANOCOBALAMIN
  6. VITAMIN D3 [Concomitant]
     Active Substance: CHOLECALCIFEROL

REACTIONS (7)
  - Headache [None]
  - Pain in jaw [None]
  - Swelling face [None]
  - Night sweats [None]
  - Pyrexia [None]
  - Vision blurred [None]
  - Giant cell arteritis [None]

NARRATIVE: CASE EVENT DATE: 20240121
